FAERS Safety Report 4797285-9 (Version None)
Quarter: 2005Q4

REPORT INFORMATION
  Report Type: 
  Country: None (occurrence: None)
  Receive Date: 20051013
  Receipt Date: 20050808
  Transmission Date: 20060501
  Serious: Yes (Hospitalization)
  Sender: FDA-Public Use
  Company Number: JP-GLAXOSMITHKLINE-B0390094A

PATIENT
  Age: 62 Year
  Sex: Female
  Weight: 54 kg

DRUGS (5)
  1. VALTREX [Suspect]
     Indication: HERPES ZOSTER
     Dosage: 1000MG THREE TIMES PER DAY
     Route: 048
     Dates: start: 20050728, end: 20050803
  2. VOLTAREN [Suspect]
     Route: 054
     Dates: start: 20050729, end: 20050805
  3. GASMOTIN [Concomitant]
     Indication: GASTRITIS
     Dosage: 15MG PER DAY
     Route: 048
     Dates: start: 20050729, end: 20050805
  4. GASTER [Concomitant]
     Route: 065
  5. MUCOSTA [Concomitant]
     Indication: GASTRITIS
     Dosage: 300MG PER DAY
     Route: 048
     Dates: start: 20050729, end: 20050805

REACTIONS (3)
  - GINGIVAL BLEEDING [None]
  - PURPURA [None]
  - THROMBOCYTOPENIA [None]
